FAERS Safety Report 9900049 (Version 1)
Quarter: 2014Q1

REPORT INFORMATION
  Report Type: Spontaneous
  Country: US (occurrence: US)
  Receive Date: 20140214
  Receipt Date: 20140214
  Transmission Date: 20141002
  Serious: No
  Sender: FDA-Public Use
  Company Number: US-VIVUS-2014V1000038

PATIENT
  Sex: Female
  Weight: 76.27 kg

DRUGS (10)
  1. QSYMIA 3.75MG/23MG [Suspect]
     Indication: WEIGHT DECREASED
     Route: 048
     Dates: start: 2013, end: 2013
  2. QSYMIA 7.5MG/46MG [Suspect]
     Indication: WEIGHT DECREASED
     Route: 048
     Dates: start: 201310, end: 201311
  3. QSYMIA 11.25MG/69MG [Suspect]
     Indication: WEIGHT DECREASED
     Route: 048
     Dates: start: 201312
  4. ADVAIR [Concomitant]
     Indication: EMPHYSEMA
     Dates: start: 2009
  5. SPIRIVA [Concomitant]
     Indication: EMPHYSEMA
     Dates: start: 2008
  6. ALBUTEROL [Concomitant]
     Indication: EMPHYSEMA
     Dates: start: 2008
  7. HYDROCHLOROTHIAZIDE AND TRIAMTERENE [Concomitant]
     Indication: LOCAL SWELLING
     Dosage: 25MG/37.5MG
     Route: 048
     Dates: start: 2008
  8. CRESTOR [Concomitant]
     Indication: BLOOD CHOLESTEROL INCREASED
     Route: 048
     Dates: start: 2012
  9. EVISTA [Concomitant]
     Indication: BONE DISORDER
     Route: 048
     Dates: start: 2012
  10. EVISTA [Concomitant]
     Indication: HORMONE THERAPY

REACTIONS (4)
  - Gingival pain [Not Recovered/Not Resolved]
  - Tooth deposit [Not Recovered/Not Resolved]
  - Dry mouth [Not Recovered/Not Resolved]
  - Gastroenteritis viral [Recovered/Resolved]
